FAERS Safety Report 14038928 (Version 8)
Quarter: 2018Q3

REPORT INFORMATION
  Report Type: Report from Study
  Country: ES (occurrence: ES)
  Receive Date: 20171004
  Receipt Date: 20180914
  Transmission Date: 20181010
  Serious: Yes (Hospitalization)
  Sender: FDA-Public Use
  Company Number: ES-SA-2017SA185460

PATIENT
  Age: 29 Year
  Sex: Female
  Weight: 45 kg

DRUGS (2)
  1. ALEMTUZUMAB [Suspect]
     Active Substance: ALEMTUZUMAB
     Indication: MULTIPLE SCLEROSIS RELAPSE
     Dosage: 12 MG,QD
     Route: 041
     Dates: start: 20170717, end: 20170719
  2. ALEMTUZUMAB [Suspect]
     Active Substance: ALEMTUZUMAB
     Dosage: 12 MG, QD
     Route: 041
     Dates: start: 20160808, end: 20160812

REACTIONS (15)
  - Myalgia [Recovering/Resolving]
  - Leukopenia [Recovered/Resolved]
  - Tonsillitis [Recovering/Resolving]
  - Myalgia [Recovered/Resolved]
  - Arthralgia [Recovering/Resolving]
  - Odynophagia [Recovering/Resolving]
  - Cholecystitis [Recovered/Resolved]
  - Human herpesvirus 6 infection [Recovering/Resolving]
  - Lymphadenopathy [Recovered/Resolved]
  - Headache [Recovered/Resolved]
  - Leukopenia [Recovering/Resolving]
  - Lymphopenia [Recovering/Resolving]
  - Monocytopenia [Recovering/Resolving]
  - Oral herpes [Recovered/Resolved]
  - Oral herpes [Recovered/Resolved]

NARRATIVE: CASE EVENT DATE: 20170717
